FAERS Safety Report 7611335-3 (Version None)
Quarter: 2011Q3

REPORT INFORMATION
  Report Type: 
  Country: None (occurrence: None)
  Receive Date: 20110715
  Receipt Date: 20101207
  Transmission Date: 20111222
  Serious: Yes (Death, Life-Threatening, Hospitalization, Disabling)
  Sender: FDA-Public Use
  Company Number: PH-ROCHE-740082

PATIENT
  Sex: Female
  Weight: 52 kg

DRUGS (3)
  1. DOCETAXEL [Suspect]
     Dosage: DOSAGE FORM VIALS, LAST DOSE PRIOR TO SAE 26 OCT 2010, PERMANENTLY DISCONTINUED ON 16 NOV 2010
     Route: 042
     Dates: start: 20101026, end: 20101116
  2. CIPROFLOXACIN [Concomitant]
     Dates: start: 20101026, end: 20101102
  3. TRASTUZUMAB [Suspect]
     Dosage: DOSAGE FORM VIALS, LAST DOSE PRIOR TO SAE : 26 OCT 2010, PERMANENTLY DISCONTINUED ON 16 NOV 2010
     Route: 042
     Dates: start: 20101026, end: 20101116

REACTIONS (4)
  - PNEUMONIA [None]
  - FEBRILE NEUTROPENIA [None]
  - UPPER GASTROINTESTINAL HAEMORRHAGE [None]
  - HEPATIC FAILURE [None]
